FAERS Safety Report 8406718-8 (Version None)
Quarter: 2012Q2

REPORT INFORMATION
  Report Type: 
  Country: None (occurrence: None)
  Receive Date: 20120604
  Receipt Date: 20120531
  Transmission Date: 20120825
  Serious: Yes (Death, Other)
  Sender: FDA-Public Use
  Company Number: PHHY2012ZA046749

PATIENT
  Age: 23 Year
  Sex: Female

DRUGS (2)
  1. OXYTOCIN [Suspect]
     Dosage: 20 UNITS
  2. OXYTOCIN [Suspect]
     Indication: POSTPARTUM HAEMORRHAGE
     Dosage: 10 IU/ML, UNK
     Route: 030

REACTIONS (2)
  - DEATH [None]
  - POSTPARTUM HAEMORRHAGE [None]
